FAERS Safety Report 24780624 (Version 4)
Quarter: 2025Q1

REPORT INFORMATION
  Report Type: Spontaneous
  Country: US (occurrence: US)
  Receive Date: 20241227
  Receipt Date: 20250312
  Transmission Date: 20250409
  Serious: Yes (Other)
  Sender: CSL BEHRING
  Company Number: US-BEH-2024189033

PATIENT
  Sex: Female

DRUGS (10)
  1. HIZENTRA [Suspect]
     Active Substance: HUMAN IMMUNOGLOBULIN G
     Indication: Immunodeficiency common variable
     Dosage: 10 MG/ 50 ML
     Route: 058
     Dates: start: 20240725
  2. ATORVASTATIN [Concomitant]
     Active Substance: ATORVASTATIN
  3. AZITHROMYCIN [Concomitant]
     Active Substance: AZITHROMYCIN
  4. DICLOFENAC [Concomitant]
     Active Substance: DICLOFENAC
  5. EPINEPHRINE [Concomitant]
     Active Substance: EPINEPHRINE
  6. FLUTICASONE [Concomitant]
     Active Substance: FLUTICASONE
  7. LIDOCAINE\PRILOCAINE [Concomitant]
     Active Substance: LIDOCAINE\PRILOCAINE
  8. LISINOPRIL [Concomitant]
     Active Substance: LISINOPRIL
  9. MONTELUKAST [Concomitant]
     Active Substance: MONTELUKAST
  10. MOMETASONE [Concomitant]
     Active Substance: MOMETASONE

REACTIONS (7)
  - Drug ineffective [Not Recovered/Not Resolved]
  - Injection site swelling [Not Recovered/Not Resolved]
  - Injection site erythema [Not Recovered/Not Resolved]
  - Injection site mass [Not Recovered/Not Resolved]
  - Drug administered in wrong device [Unknown]
  - Infusion site swelling [Unknown]
  - Infusion site erythema [Unknown]
